FAERS Safety Report 19773979 (Version 4)
Quarter: 2021Q3

REPORT INFORMATION
  Report Type: Spontaneous
  Country: US (occurrence: US)
  Receive Date: 20210901
  Receipt Date: 20210903
  Transmission Date: 20211014
  Serious: Yes (Other)
  Sender: FDA-Public Use
  Company Number: US-CELGENEUS-USA-20210808469

PATIENT
  Sex: Female

DRUGS (1)
  1. REVLIMID [Suspect]
     Active Substance: LENALIDOMIDE
     Indication: PLASMA CELL MYELOMA
     Route: 048

REACTIONS (9)
  - Throat irritation [Unknown]
  - Prostatic disorder [Unknown]
  - Neuropathy peripheral [Unknown]
  - Foreign body in throat [Unknown]
  - Pain [Unknown]
  - Headache [Unknown]
  - Bladder cancer [Unknown]
  - Memory impairment [Unknown]
  - Diarrhoea [Unknown]
